FAERS Safety Report 17157037 (Version 1)
Quarter: 2019Q4

REPORT INFORMATION
  Report Type: Spontaneous
  Country: US (occurrence: US)
  Receive Date: 20191216
  Receipt Date: 20191216
  Transmission Date: 20200122
  Serious: Yes (Other)
  Sender: FDA-Public Use
  Company Number: US-AMGEN-USASP2019206550

PATIENT
  Age: 72 Year
  Sex: Male

DRUGS (6)
  1. ASPIRIN [ACETYLSALICYLIC ACID] [Concomitant]
     Active Substance: ASPIRIN
     Indication: CARDIAC DISORDER
     Dosage: 81 MILLIGRAM, QD
  2. LISINOPRIL. [Concomitant]
     Active Substance: LISINOPRIL
     Indication: BLOOD PRESSURE INCREASED
     Dosage: 2.5 MILLIGRAM, QD
  3. METOPROLOL. [Concomitant]
     Active Substance: METOPROLOL
     Indication: ARRHYTHMIA
     Dosage: 25 MILLIGRAM, QD
  4. ZETIA [Concomitant]
     Active Substance: EZETIMIBE
     Indication: BLOOD CHOLESTEROL INCREASED
     Dosage: 10 MILLIGRAM, QD
  5. PLAVIX [Concomitant]
     Active Substance: CLOPIDOGREL BISULFATE
     Indication: BLOOD VISCOSITY INCREASED
     Dosage: 75 MILLIGRAM, QD
     Dates: start: 201807
  6. REPATHA [Suspect]
     Active Substance: EVOLOCUMAB
     Indication: BLOOD CHOLESTEROL INCREASED
     Dosage: 140 MILLIGRAM, Q2WK
     Route: 065
     Dates: start: 201910

REACTIONS (4)
  - Sinus congestion [Not Recovered/Not Resolved]
  - Cough [Not Recovered/Not Resolved]
  - Apnoeic attack [Unknown]
  - Paranasal sinus hypersecretion [Not Recovered/Not Resolved]

NARRATIVE: CASE EVENT DATE: 201910
